FAERS Safety Report 6833478-4 (Version None)
Quarter: 2010Q3

REPORT INFORMATION
  Report Type: 
  Country: None (occurrence: None)
  Receive Date: 20100712
  Receipt Date: 20070326
  Transmission Date: 20110219
  Serious: No
  Sender: FDA-Public Use
  Company Number: US-PFIZER INC-2007026021

PATIENT
  Age: 39 Year
  Sex: Female
  Weight: 74.84 kg

DRUGS (1)
  1. CHANTIX [Suspect]
     Indication: EX-TOBACCO USER
     Dates: start: 20070319

REACTIONS (8)
  - ABNORMAL DREAMS [None]
  - DECREASED APPETITE [None]
  - DYSGEUSIA [None]
  - INSOMNIA [None]
  - MALAISE [None]
  - NAUSEA [None]
  - RETCHING [None]
  - TERMINAL INSOMNIA [None]
